FAERS Safety Report 7192395-3 (Version None)
Quarter: 2010Q4

REPORT INFORMATION
  Report Type: 
  Country: None (occurrence: None)
  Receive Date: 20101222
  Receipt Date: 20101222
  Transmission Date: 20110411
  Serious: No
  Sender: FDA-Public Use
  Company Number: None

PATIENT
  Age: 29 Year
  Sex: Male
  Weight: 79.3795 kg

DRUGS (1)
  1. ZICAM CHEWABLE STRAWBERRY [Suspect]
     Indication: NASOPHARYNGITIS
     Dosage: 1 CHEWABLE EVERY 3 HOURS PO
     Route: 048
     Dates: start: 20101218, end: 20101221

REACTIONS (2)
  - AGEUSIA [None]
  - ANOSMIA [None]
